FAERS Safety Report 9117416 (Version 1)
Quarter: 2013Q1

REPORT INFORMATION
  Report Type: Spontaneous
  Country: US (occurrence: US)
  Receive Date: 20130225
  Receipt Date: 20130225
  Transmission Date: 20140127
  Serious: Yes (Hospitalization, Other)
  Sender: FDA-Public Use
  Company Number: US-TEVA-387718USA

PATIENT
  Age: 63 Year
  Sex: Male

DRUGS (1)
  1. BACTRIM [Suspect]
     Indication: EVIDENCE BASED TREATMENT
     Route: 065

REACTIONS (1)
  - Hyperkalaemia [Recovering/Resolving]
